FAERS Safety Report 4677574-9 (Version None)
Quarter: 2005Q2

REPORT INFORMATION
  Report Type: 
  Country: None (occurrence: None)
  Receive Date: 20050526
  Receipt Date: 20050526
  Transmission Date: 20051028
  Serious: No
  Sender: FDA-Public Use
  Company Number: None

PATIENT
  Age: 61 Year
  Sex: Male
  Weight: 54.4316 kg

DRUGS (7)
  1. WARFARIN   BLOOD COAGULATION MODIFIERS   TABLETS [Suspect]
     Indication: STENT PLACEMENT
     Dosage: 5 MG DAILY
  2. ATENOLOL [Concomitant]
  3. GATIFLOXACIN [Concomitant]
  4. NICOTINE [Concomitant]
  5. OMEPRAZOLE [Concomitant]
  6. PERCOCET [Concomitant]
  7. RANITIDINE [Concomitant]

REACTIONS (4)
  - DRUG TOXICITY [None]
  - GASTROINTESTINAL DISORDER [None]
  - HAEMATOMA [None]
  - INTERNATIONAL NORMALISED RATIO INCREASED [None]
